FAERS Safety Report 7484408-6 (Version None)
Quarter: 2011Q2

REPORT INFORMATION
  Report Type: 
  Country: None (occurrence: None)
  Receive Date: 20110513
  Receipt Date: 20110513
  Transmission Date: 20111010
  Serious: No
  Sender: FDA-Public Use
  Company Number: None

PATIENT
  Age: 55 Year
  Sex: Female
  Weight: 77.3 kg

DRUGS (2)
  1. TUBERCULIN NOS [Suspect]
     Indication: TUBERCULIN TEST
     Dosage: 057
     Dates: start: 20110425
  2. TUBERCULIN NOS [Suspect]
     Indication: TUBERCULIN TEST
     Dosage: 057
     Dates: start: 20110509

REACTIONS (6)
  - INJECTION SITE ERYTHEMA [None]
  - INJECTION SITE MASS [None]
  - PRURITUS [None]
  - RASH [None]
  - TREMOR [None]
  - DIZZINESS [None]
